FAERS Safety Report 4896522-X (Version None)
Quarter: 2006Q1

REPORT INFORMATION
  Report Type: 
  Country: None (occurrence: None)
  Receive Date: 20060131
  Receipt Date: 20051222
  Transmission Date: 20060701
  Serious: Yes (Hospitalization, Other)
  Sender: FDA-Public Use
  Company Number: PT-GLAXOSMITHKLINE-B0404773A

PATIENT
  Age: 48 Year
  Sex: Male
  Weight: 74 kg

DRUGS (7)
  1. FOSAMPRENAVIR [Suspect]
     Indication: HIV INFECTION
     Dosage: 700MG TWICE PER DAY
     Route: 048
     Dates: start: 20050913
  2. LAMIVUDINE [Concomitant]
  3. TENOFOVIR [Concomitant]
     Route: 065
  4. ZYPREXA [Concomitant]
  5. VALPROATE SODIUM [Concomitant]
  6. VIREAD [Concomitant]
     Dosage: 245MG PER DAY
     Route: 048
     Dates: start: 20050601
  7. EMTRIVA [Concomitant]
     Dosage: 245MG PER DAY
     Route: 048
     Dates: start: 20050601

REACTIONS (5)
  - DELUSION [None]
  - HALLUCINATION [None]
  - MANIA [None]
  - PSYCHOTIC DISORDER [None]
  - THINKING ABNORMAL [None]
